FAERS Safety Report 5367734-6 (Version None)
Quarter: 2007Q2

REPORT INFORMATION
  Report Type: 
  Country: None (occurrence: None)
  Receive Date: 20070622
  Receipt Date: 20070316
  Transmission Date: 20071010
  Serious: No
  Sender: FDA-Public Use
  Company Number: US-ASTRAZENECA-2007UW05246

PATIENT
  Age: 64 Year
  Sex: Female
  Weight: 59 kg

DRUGS (7)
  1. PULMICORT RESPULES [Suspect]
     Indication: CHRONIC OBSTRUCTIVE PULMONARY DISEASE
     Route: 055
     Dates: start: 20070301
  2. FLORADIL [Concomitant]
  3. DUONEB [Concomitant]
  4. PREVACID [Concomitant]
  5. SINGULAIR [Concomitant]
  6. PREMARIN [Concomitant]
  7. FOSAMAX [Concomitant]

REACTIONS (1)
  - DYSPNOEA [None]
